FAERS Safety Report 20623312 (Version 2)
Quarter: 2022Q2

REPORT INFORMATION
  Report Type: Spontaneous
  Country: US (occurrence: None)
  Receive Date: 20220322
  Receipt Date: 20220511
  Transmission Date: 20220721
  Serious: Yes (Hospitalization)
  Sender: FDA-Public Use
  Company Number: 2022A113551

PATIENT
  Sex: Male
  Weight: 140.6 kg

DRUGS (2)
  1. BYDUREON BCISE [Suspect]
     Active Substance: EXENATIDE
     Indication: Type 2 diabetes mellitus
     Route: 058
     Dates: start: 2020
  2. BYDUREON [Concomitant]
     Active Substance: EXENATIDE
     Indication: Type 2 diabetes mellitus
     Route: 058
     Dates: start: 2018, end: 2020

REACTIONS (15)
  - Cartilage injury [Recovered/Resolved]
  - Intestinal obstruction [Recovered/Resolved]
  - Atrial fibrillation [Recovered/Resolved]
  - Dehydration [Recovered/Resolved]
  - Vomiting [Recovered/Resolved]
  - Diarrhoea [Recovered/Resolved]
  - Pain [Recovered/Resolved]
  - Injection site haemorrhage [Unknown]
  - Weight decreased [Unknown]
  - Somnolence [Recovered/Resolved]
  - Decreased appetite [Recovered/Resolved]
  - Device leakage [Unknown]
  - Wrong technique in device usage process [Unknown]
  - Incorrect dose administered by device [Unknown]
  - Drug delivery system malfunction [Unknown]
